FAERS Safety Report 5087472-7 (Version None)
Quarter: 2006Q3

REPORT INFORMATION
  Report Type: 
  Country: None (occurrence: None)
  Receive Date: 20060824
  Receipt Date: 20060809
  Transmission Date: 20061208
  Serious: Yes (Life-Threatening, Hospitalization)
  Sender: FDA-Public Use
  Company Number: US-AVENTIS-200616656US

PATIENT
  Sex: Female
  Weight: 72.72 kg

DRUGS (15)
  1. ALLEGRA [Suspect]
     Dosage: DOSE: UNKNOWN
  2. XYREM                                   /USA/ [Suspect]
     Indication: SLEEP DISORDER
     Dates: start: 20050201, end: 20050201
  3. XYREM                                   /USA/ [Suspect]
     Dosage: DOSE: UNKNOWN
     Dates: start: 20050601, end: 20050714
  4. XYREM                                   /USA/ [Suspect]
     Indication: RAPID EYE MOVEMENTS SLEEP ABNORMAL
     Dates: start: 20050201, end: 20050201
  5. XYREM                                   /USA/ [Suspect]
     Dosage: DOSE: UNKNOWN
     Dates: start: 20050601, end: 20050714
  6. COUGH AND COLD PREPARATIONS [Suspect]
     Dosage: DOSE: UNKNOWN
  7. PAXIL [Suspect]
     Route: 048
     Dates: start: 20050101, end: 20050705
  8. PAXIL [Suspect]
     Route: 048
     Dates: start: 20050705, end: 20050819
  9. PAXIL [Suspect]
     Route: 048
     Dates: start: 20050819
  10. ZYPREXA [Suspect]
     Route: 048
     Dates: start: 20050705
  11. RELPAX [Suspect]
     Dosage: DOSE: UNKNOWN
  12. AMBIEN [Concomitant]
     Dosage: DOSE: UNKNOWN
  13. ROBAXIN [Concomitant]
     Dosage: DOSE: UNKNOWN
  14. ESTROGEN CREAM [Concomitant]
     Dosage: DOSE: UNKNOWN
  15. ASPIRIN [Concomitant]
     Dosage: DOSE: UNKNOWN

REACTIONS (33)
  - ABNORMAL BEHAVIOUR [None]
  - AFFECTIVE DISORDER [None]
  - BRADYPHRENIA [None]
  - CONFUSIONAL STATE [None]
  - DELUSION [None]
  - DEPRESSION [None]
  - DRUG INTERACTION [None]
  - DYSPHORIA [None]
  - FEELING ABNORMAL [None]
  - FEELINGS OF WORTHLESSNESS [None]
  - FLAT AFFECT [None]
  - HALLUCINATION [None]
  - HALLUCINATION, AUDITORY [None]
  - HALLUCINATION, VISUAL [None]
  - HALLUCINATIONS, MIXED [None]
  - HOMICIDAL IDEATION [None]
  - HYPERSOMNIA [None]
  - ILLUSION [None]
  - INTENTIONAL OVERDOSE [None]
  - MORBID THOUGHTS [None]
  - NERVOUSNESS [None]
  - OBSESSIVE THOUGHTS [None]
  - OBSESSIVE-COMPULSIVE DISORDER [None]
  - PANIC DISORDER [None]
  - PARANOIA [None]
  - PSYCHOTIC DISORDER [None]
  - SLEEP DISORDER [None]
  - SOMATIC DELUSION [None]
  - SUICIDE ATTEMPT [None]
  - TACHYCARDIA [None]
  - TANGENTIALITY [None]
  - THINKING ABNORMAL [None]
  - WHITE BLOOD CELL COUNT INCREASED [None]
